FAERS Safety Report 9701459 (Version 1)
Quarter: 2013Q4

REPORT INFORMATION
  Report Type: Spontaneous
  Country: US (occurrence: None)
  Receive Date: 20131119
  Receipt Date: 20131119
  Transmission Date: 20140711
  Serious: Yes (Hospitalization)
  Sender: FDA-Public Use
  Company Number: IMP_06875_2013

PATIENT
  Age: 54 Year
  Sex: Female

DRUGS (1)
  1. METFORMIN [Suspect]
     Indication: PRODUCT USED FOR UNKNOWN INDICATION
     Dosage: DF

REACTIONS (7)
  - Abdominal pain [None]
  - Vomiting [None]
  - Confusional state [None]
  - Lactic acidosis [None]
  - Pancreatitis acute [None]
  - Renal failure [None]
  - Toxicity to various agents [None]
